FAERS Safety Report 9986067 (Version 1)
Quarter: 2014Q1

REPORT INFORMATION
  Report Type: Report from Study
  Country: US (occurrence: US)
  Receive Date: 20140307
  Receipt Date: 20140307
  Transmission Date: 20141002
  Serious: No
  Sender: FDA-Public Use
  Company Number: US-ABBVIE-13P-163-1089225-00

PATIENT
  Age: 52 Year
  Sex: Female
  Weight: 67.65 kg

DRUGS (7)
  1. HUMIRA [Suspect]
     Indication: COLITIS ULCERATIVE
     Dates: start: 20130503
  2. SYNTHROID [Concomitant]
     Indication: HYPOTHYROIDISM
  3. ASACOL [Concomitant]
     Indication: PRODUCT USED FOR UNKNOWN INDICATION
  4. HYOMAX [Concomitant]
     Indication: COLITIS ULCERATIVE
  5. PREDNISONE [Concomitant]
     Indication: COLITIS ULCERATIVE
  6. NEXIUM [Concomitant]
     Indication: GASTROOESOPHAGEAL REFLUX DISEASE
  7. TOPAMAX [Concomitant]
     Indication: MIGRAINE

REACTIONS (3)
  - Weight increased [Unknown]
  - Oedema peripheral [Not Recovered/Not Resolved]
  - Chest discomfort [Unknown]
